FAERS Safety Report 9461141 (Version 2)
Quarter: 2013Q4

REPORT INFORMATION
  Report Type: Spontaneous
  Country: US (occurrence: US)
  Receive Date: 20130816
  Receipt Date: 20131112
  Transmission Date: 20140711
  Serious: No
  Sender: FDA-Public Use
  Company Number: US-BIOGENIDEC-2013BI075440

PATIENT
  Sex: Female

DRUGS (18)
  1. AVONEX [Suspect]
     Indication: MULTIPLE SCLEROSIS
     Route: 030
     Dates: start: 2010, end: 201010
  2. AMPYRA [Concomitant]
     Indication: GAIT DISTURBANCE
     Route: 048
     Dates: start: 201005, end: 2010
  3. AMPYRA [Concomitant]
     Indication: GAIT DISTURBANCE
     Dates: start: 201307, end: 2013
  4. AMPYRA [Concomitant]
     Indication: GAIT DISTURBANCE
     Dates: start: 2013, end: 2013
  5. AMPYRA [Concomitant]
     Indication: GAIT DISTURBANCE
     Dates: start: 201309, end: 2013
  6. TECFIDERA [Concomitant]
     Indication: MULTIPLE SCLEROSIS
  7. TECFIDERA [Concomitant]
     Indication: MULTIPLE SCLEROSIS
     Dates: start: 201306, end: 2013
  8. CRANBERRY [Concomitant]
     Indication: PRODUCT USED FOR UNKNOWN INDICATION
     Route: 048
  9. VITAMIN D [Concomitant]
     Indication: PRODUCT USED FOR UNKNOWN INDICATION
     Route: 048
  10. FIORINAL [Concomitant]
     Indication: PRODUCT USED FOR UNKNOWN INDICATION
     Route: 048
  11. FLUDROCORTISONE [Concomitant]
     Indication: PRODUCT USED FOR UNKNOWN INDICATION
     Route: 048
  12. MATHENAMINE MANDELATE [Concomitant]
     Indication: PRODUCT USED FOR UNKNOWN INDICATION
     Route: 048
  13. OXYBUTYNIN CHLORIDE [Concomitant]
     Indication: PRODUCT USED FOR UNKNOWN INDICATION
     Route: 048
  14. CITALOPRAM [Concomitant]
     Indication: PRODUCT USED FOR UNKNOWN INDICATION
     Route: 048
  15. LUNESTA [Concomitant]
     Indication: PRODUCT USED FOR UNKNOWN INDICATION
     Route: 048
  16. TIZANIDINE [Concomitant]
     Indication: PRODUCT USED FOR UNKNOWN INDICATION
  17. COD LIVER OIL [Concomitant]
     Indication: PRODUCT USED FOR UNKNOWN INDICATION
  18. VITAMIN B12 [Concomitant]
     Indication: PRODUCT USED FOR UNKNOWN INDICATION

REACTIONS (11)
  - Migraine [Recovered/Resolved]
  - Abnormal dreams [Recovered/Resolved]
  - Multiple sclerosis [Unknown]
  - Erythema [Unknown]
  - Skin burning sensation [Unknown]
  - Skin warm [Unknown]
  - Memory impairment [Unknown]
  - Influenza like illness [Recovered/Resolved]
  - Rash [Unknown]
  - Pruritus [Unknown]
  - Drug ineffective [Unknown]
